FAERS Safety Report 8936902 (Version 2)
Quarter: 2013Q1

REPORT INFORMATION
  Report Type: Spontaneous
  Country: US (occurrence: US)
  Receive Date: 20121130
  Receipt Date: 20130102
  Transmission Date: 20140127
  Serious: Yes (Hospitalization)
  Sender: FDA-Public Use
  Company Number: US-BAYER-2012-105241

PATIENT
  Age: 38 Year
  Sex: Male
  Weight: 86 kg

DRUGS (4)
  1. AVELOX [Suspect]
     Indication: INFLUENZA LIKE ILLNESS
     Dosage: UNK UNK, ONCE
     Dates: start: 20111220
  2. AVELOX [Suspect]
     Indication: NASOPHARYNGITIS
  3. LEXAPRO [Concomitant]
     Indication: ANXIETY
     Dosage: UNK UNK, QD
     Dates: start: 1992
  4. NEXIUM [Concomitant]
     Indication: GASTROOESOPHAGEAL REFLUX DISEASE
     Dosage: UNK
     Dates: start: 1996

REACTIONS (9)
  - Anaphylactic reaction [None]
  - Disease recurrence [None]
  - Dyspnoea [Recovering/Resolving]
  - Vomiting [Recovering/Resolving]
  - Hypoaesthesia [Recovering/Resolving]
  - Convulsion [Recovering/Resolving]
  - Consciousness fluctuating [Recovering/Resolving]
  - Panic reaction [None]
  - Fear of death [None]
